FAERS Safety Report 9691161 (Version 1)
Quarter: 2013Q4

REPORT INFORMATION
  Report Type: Spontaneous
  Country: US (occurrence: US)
  Receive Date: 20131115
  Receipt Date: 20131115
  Transmission Date: 20140711
  Serious: Yes (Other)
  Sender: FDA-Public Use
  Company Number: US-BRISTOL-MYERS SQUIBB COMPANY-19784594

PATIENT
  Age: 55 Year
  Sex: Male

DRUGS (4)
  1. ELIQUIS [Suspect]
     Indication: ATRIAL FIBRILLATION
     Dates: start: 20131025
  2. INDOMETHACIN [Suspect]
  3. CARDIZEM [Suspect]
     Dates: start: 20131025
  4. TOPROL [Concomitant]

REACTIONS (3)
  - Jaundice [Recovered/Resolved]
  - Blood alkaline phosphatase increased [Unknown]
  - Transaminases increased [Unknown]
